FAERS Safety Report 21302552 (Version 2)
Quarter: 2022Q3

REPORT INFORMATION
  Report Type: Spontaneous
  Country: BR (occurrence: BR)
  Receive Date: 20220907
  Receipt Date: 20220909
  Transmission Date: 20221027
  Serious: Yes (Other)
  Sender: FDA-Public Use
  Company Number: BR-NOVARTISPH-NVSC2022BR201056

PATIENT
  Sex: Male

DRUGS (2)
  1. TEGRETOL XR [Suspect]
     Active Substance: CARBAMAZEPINE
     Indication: Seizure
     Dosage: UNK
     Route: 065
  2. TEGRETOL [Suspect]
     Active Substance: CARBAMAZEPINE
     Indication: Seizure
     Dosage: 400 MG, BID
     Route: 065

REACTIONS (4)
  - Thrombosis [Unknown]
  - Seizure [Recovered/Resolved]
  - Malaise [Unknown]
  - Product availability issue [Unknown]
